FAERS Safety Report 12776180 (Version 1)
Quarter: 2016Q3

REPORT INFORMATION
  Report Type: Spontaneous
  Country: US (occurrence: US)
  Receive Date: 20160923
  Receipt Date: 20160923
  Transmission Date: 20161109
  Serious: No
  Sender: FDA-Public Use
  Company Number: US-TEVA-685402USA

PATIENT
  Age: 55 Year
  Sex: Female
  Weight: 55.84 kg

DRUGS (5)
  1. CIMZIA [Concomitant]
     Active Substance: CERTOLIZUMAB PEGOL
     Indication: CROHN^S DISEASE
  2. QNASL [Suspect]
     Active Substance: BECLOMETHASONE DIPROPIONATE
     Indication: HYPERSENSITIVITY
  3. RESTASIS [Concomitant]
     Active Substance: CYCLOSPORINE
  4. AZELASTINE [Concomitant]
     Active Substance: AZELASTINE
  5. SINGULAIR [Concomitant]
     Active Substance: MONTELUKAST SODIUM

REACTIONS (8)
  - Hypersensitivity [Unknown]
  - Drug dose omission [Unknown]
  - Vitamin C deficiency [Unknown]
  - Vitamin B12 deficiency [Unknown]
  - Headache [Unknown]
  - Anaemia [Unknown]
  - Vitamin D deficiency [Unknown]
  - Vitamin E deficiency [Unknown]

NARRATIVE: CASE EVENT DATE: 201606
